FAERS Safety Report 7661663-0 (Version None)
Quarter: 2011Q3

REPORT INFORMATION
  Report Type: 
  Country: None (occurrence: None)
  Receive Date: 20110805
  Receipt Date: 20101117
  Transmission Date: 20111222
  Serious: No
  Sender: FDA-Public Use
  Company Number: US-ABBOTT-10P-163-0686123-00

PATIENT
  Sex: Female
  Weight: 56.75 kg

DRUGS (2)
  1. NIASPAN [Suspect]
     Indication: LOW DENSITY LIPOPROTEIN INCREASED
     Dosage: EVERY NIGHT
     Dates: start: 20070101, end: 20101001
  2. NIASPAN [Suspect]

REACTIONS (2)
  - INFLUENZA [None]
  - LOW DENSITY LIPOPROTEIN INCREASED [None]
